FAERS Safety Report 18940726 (Version 5)
Quarter: 2021Q1

REPORT INFORMATION
  Report Type: Spontaneous
  Country: AR (occurrence: AR)
  Receive Date: 20210225
  Receipt Date: 20210319
  Transmission Date: 20210420
  Serious: Yes (Other)
  Sender: FDA-Public Use
  Company Number: AR-PFIZER INC-2021192097

PATIENT
  Age: 84 Year
  Sex: Male
  Weight: 63 kg

DRUGS (9)
  1. ALPLAX [Suspect]
     Active Substance: ALPRAZOLAM
     Indication: CEREBROVASCULAR ACCIDENT PROPHYLAXIS
     Dosage: UNK UNK, DAILY
  2. ELIQUIS [Suspect]
     Active Substance: APIXABAN
     Indication: CEREBROVASCULAR ACCIDENT PROPHYLAXIS
     Dosage: UNK, DAILY
     Route: 065
     Dates: start: 201607
  3. AMIODARONE [Suspect]
     Active Substance: AMIODARONE
     Dosage: UNK, DAILY
  4. EXFORGE [Suspect]
     Active Substance: AMLODIPINE BESYLATE\VALSARTAN
  5. PREGABALIN. [Suspect]
     Active Substance: PREGABALIN
     Dosage: UNK, DAILY
  6. ROSUVASTATIN. [Suspect]
     Active Substance: ROSUVASTATIN
     Dosage: UNK, DAILY
  7. EX3 [Suspect]
     Active Substance: ESCITALOPRAM OXALATE
  8. NOSTER [AMLODIPINE BESILATE;VALSARTAN] [Suspect]
     Active Substance: AMLODIPINE BESYLATE\VALSARTAN
  9. LEXTOR [Suspect]
     Active Substance: ESCITALOPRAM OXALATE

REACTIONS (26)
  - Red blood cell count decreased [Recovered/Resolved]
  - Depression [Unknown]
  - Tachycardia [Unknown]
  - Blood cholesterol increased [Recovered/Resolved]
  - Platelet count decreased [Recovered/Resolved]
  - Haematocrit decreased [Unknown]
  - Low density lipoprotein increased [Recovered/Resolved]
  - Prothrombin time shortened [Unknown]
  - Bilirubin conjugated increased [Recovered/Resolved]
  - Creatinine renal clearance decreased [Unknown]
  - Arrhythmia [Unknown]
  - Blood urea increased [Unknown]
  - Aortic aneurysm [Unknown]
  - Activated partial thromboplastin time shortened [Recovered/Resolved]
  - Blood 25-hydroxycholecalciferol decreased [Unknown]
  - Essential hypertension [Unknown]
  - Monocyte count decreased [Recovered/Resolved]
  - Blood parathyroid hormone increased [Unknown]
  - Eosinophil count increased [Recovered/Resolved]
  - Monocyte count increased [Recovered/Resolved]
  - Anxiety [Unknown]
  - Oedema peripheral [Unknown]
  - Renal impairment [Unknown]
  - Atrial fibrillation [Unknown]
  - Blood creatinine increased [Unknown]
  - Neutrophil count decreased [Recovered/Resolved]

NARRATIVE: CASE EVENT DATE: 201610
